FAERS Safety Report 5622815-4 (Version None)
Quarter: 2008Q1

REPORT INFORMATION
  Report Type: 
  Country: None (occurrence: None)
  Receive Date: 20080212
  Receipt Date: 20080208
  Transmission Date: 20080703
  Serious: Yes (Death)
  Sender: FDA-Public Use
  Company Number: RO-JNJFOC-20080201910

PATIENT
  Sex: Male
  Weight: 75.4 kg

DRUGS (3)
  1. RISPOLEPT CONSTA [Suspect]
     Indication: SCHIZOPHRENIA, PARANOID TYPE
     Route: 030
  2. LEVOMEPROMAZIN [Concomitant]
     Indication: SLEEP DISORDER
  3. CARBAMAZEPINA [Concomitant]
     Indication: EMOTIONAL DISORDER

REACTIONS (1)
  - ACUTE MYOCARDIAL INFARCTION [None]
